FAERS Safety Report 15715163 (Version 1)
Quarter: 2018Q4

REPORT INFORMATION
  Report Type: Spontaneous
  Country: IN (occurrence: IN)
  Receive Date: 20181212
  Receipt Date: 20181212
  Transmission Date: 20190205
  Serious: Yes (Life-Threatening, Other)
  Sender: FDA-Public Use
  Company Number: IN-BAUSCH-BL-2018-034371

PATIENT
  Age: 16 Year
  Sex: Male

DRUGS (8)
  1. METHOTREXATE. [Suspect]
     Active Substance: METHOTREXATE
     Indication: T-CELL TYPE ACUTE LEUKAEMIA
     Route: 048
  2. METHOTREXATE. [Suspect]
     Active Substance: METHOTREXATE
     Dosage: THE PATIENT ATTAINED MARROW REMISSION AFTER CYCLE IA AND WAS CONTINUED TILL IV B; CYCLICAL
     Route: 065
  3. DEXAMETHASONE. [Suspect]
     Active Substance: DEXAMETHASONE
     Indication: T-CELL TYPE ACUTE LEUKAEMIA
     Dosage: THE PATIENT ATTAINED MARROW REMISSION AFTER CYCLE IA AND WAS CONTINUED TILL IV B; CYCLICAL
     Route: 065
  4. DOXORUBICIN [Suspect]
     Active Substance: DOXORUBICIN
     Indication: T-CELL TYPE ACUTE LEUKAEMIA
     Dosage: THE PATIENT ATTAINED MARROW REMISSION AFTER CYCLE IA AND WAS CONTINUED TILL IV B; CYCLICAL
     Route: 065
  5. VINCRISTINE [Suspect]
     Active Substance: VINCRISTINE
     Indication: T-CELL TYPE ACUTE LEUKAEMIA
     Dosage: THE PATIENT ATTAINED MARROW REMISSION AFTER CYCLE IA AND WAS CONTINUED TILL IV B; CYCLICAL
     Route: 065
  6. 6-MERCAPTOPURINE [Suspect]
     Active Substance: MERCAPTOPURINE
     Indication: T-CELL TYPE ACUTE LEUKAEMIA
     Route: 048
  7. CYTARABINE. [Suspect]
     Active Substance: CYTARABINE
     Indication: T-CELL TYPE ACUTE LEUKAEMIA
     Dosage: THE PATIENT ATTAINED MARROW REMISSION AFTER CYCLE IA AND WAS CONTINUED TILL IV B; CYCLICAL
     Route: 065
  8. CYCLOPHOSPHAMIDE. [Suspect]
     Active Substance: CYCLOPHOSPHAMIDE
     Indication: T-CELL TYPE ACUTE LEUKAEMIA
     Dosage: THE PATIENT ATTAINED MARROW REMISSION AFTER CYCLE IA AND WAS CONTINUED TILL IV B; CYCLICAL
     Route: 065

REACTIONS (1)
  - Cytomegalovirus chorioretinitis [Recovering/Resolving]
